FAERS Safety Report 24311270 (Version 1)
Quarter: 2024Q3

REPORT INFORMATION
  Report Type: Spontaneous
  Country: US (occurrence: US)
  Receive Date: 20240912
  Receipt Date: 20240912
  Transmission Date: 20241017
  Serious: No
  Sender: PAREXEL
  Company Number: US-NOVEN PHARMACEUTICALS, INC.-2024-NOV-US000081

PATIENT
  Sex: Female
  Weight: 63.492 kg

DRUGS (3)
  1. COMBIPATCH [Suspect]
     Active Substance: ESTRADIOL\NORETHINDRONE ACETATE
     Indication: Menopausal symptoms
     Dosage: 0.05/0.25 MG, UNKNOWN
     Route: 062
     Dates: start: 202312
  2. COMBIPATCH [Suspect]
     Active Substance: ESTRADIOL\NORETHINDRONE ACETATE
     Indication: Off label use
  3. MODAFINIL [Concomitant]
     Active Substance: MODAFINIL
     Indication: Attention deficit hyperactivity disorder
     Dosage: UNKNOWN, UNK
     Route: 065

REACTIONS (4)
  - Dermatitis contact [Not Recovered/Not Resolved]
  - Application site irritation [Not Recovered/Not Resolved]
  - Application site erythema [Not Recovered/Not Resolved]
  - Application site pruritus [Not Recovered/Not Resolved]
